FAERS Safety Report 18106022 (Version 4)
Quarter: 2021Q2

REPORT INFORMATION
  Report Type: Spontaneous
  Country: CA (occurrence: CA)
  Receive Date: 20200803
  Receipt Date: 20210525
  Transmission Date: 20210717
  Serious: Yes (Other)
  Sender: FDA-Public Use
  Company Number: CA-PFIZER INC-2020269917

PATIENT
  Age: 68 Year
  Sex: Female

DRUGS (4)
  1. INLYTA [Suspect]
     Active Substance: AXITINIB
     Dosage: 4 MG, 2X/DAY FOR 1 MONTH
     Route: 048
  2. KEYTRUDA [Concomitant]
     Active Substance: PEMBROLIZUMAB
     Dosage: UNK
  3. INLYTA [Suspect]
     Active Substance: AXITINIB
     Dosage: 5 MG, 2X/DAY
     Route: 048
     Dates: start: 20200721
  4. INLYTA [Suspect]
     Active Substance: AXITINIB
     Dosage: 3 MG, 2X/DAY (REPORTED AS BID)
     Route: 048

REACTIONS (8)
  - Renal impairment [Unknown]
  - Dysphonia [Unknown]
  - Off label use [Unknown]
  - Nasal congestion [Unknown]
  - Neoplasm progression [Unknown]
  - Feeling cold [Unknown]
  - Diarrhoea [Unknown]
  - Epistaxis [Unknown]
